FAERS Safety Report 6493020-7 (Version None)
Quarter: 2009Q4

REPORT INFORMATION
  Report Type: 
  Country: None (occurrence: None)
  Receive Date: 20091214
  Receipt Date: 20091203
  Transmission Date: 20100525
  Serious: Yes (Hospitalization)
  Sender: FDA-Public Use
  Company Number: DE-AMGEN-UK378118

PATIENT
  Age: 51 Year

DRUGS (7)
  1. NEULASTA [Suspect]
     Indication: CHEMOTHERAPY
  2. DOCETAXEL [Suspect]
     Route: 041
     Dates: start: 20090922
  3. EPIRUBICIN [Suspect]
     Route: 041
     Dates: start: 20090922
  4. CYCLOPHOSPHAMIDE [Suspect]
     Route: 042
     Dates: start: 20090922
  5. METOHEXAL [Concomitant]
     Route: 048
  6. LEVOMEPROMAZINE [Concomitant]
     Route: 048
  7. HYDROCHLOROTHIAZIDE [Concomitant]
     Route: 048

REACTIONS (1)
  - CHEST PAIN [None]
